FAERS Safety Report 8915510 (Version 1)
Quarter: 2012Q4

REPORT INFORMATION
  Report Type: 
  Country: FR (occurrence: FR)
  Receive Date: 20121119
  Receipt Date: 20121119
  Transmission Date: 20130627
  Serious: Yes (Other)
  Sender: FDA-Public Use
  Company Number: FR-PFIZER INC-2012284838

PATIENT
  Age: 68 Year
  Sex: Female

DRUGS (5)
  1. LYRICA [Suspect]
     Indication: CRURALGIA
     Dosage: 25 mg, 1x/day
     Route: 048
     Dates: start: 20121011, end: 20121012
  2. EXFORGE [Concomitant]
     Indication: HYPERTENSION ARTERIAL
     Dosage: 5 mg/80 mg, daily
     Route: 048
     Dates: start: 20070829
  3. AERIUS [Concomitant]
     Indication: ALLERGY
     Dosage: 5 mg, 1x/day
     Route: 048
     Dates: start: 20120829
  4. SYMBICORT [Concomitant]
     Indication: CHRONIC OBSTRUCTIVE LUNG DISEASE
     Dosage: UNK
     Route: 055
     Dates: start: 20100829
  5. SPIRIVA [Concomitant]
     Indication: CHRONIC OBSTRUCTIVE LUNG DISEASE
     Dosage: UNK
     Route: 055
     Dates: start: 20100829

REACTIONS (2)
  - Melaena [Recovered/Resolved]
  - Epistaxis [Recovered/Resolved]
